FAERS Safety Report 14371739 (Version 1)
Quarter: 2018Q1

REPORT INFORMATION
  Report Type: Spontaneous
  Country: US (occurrence: US)
  Receive Date: 20180109
  Receipt Date: 20180109
  Transmission Date: 20180509
  Serious: Yes (Other)
  Sender: FDA-Public Use
  Company Number: None

PATIENT
  Age: 44 Year
  Sex: Female
  Weight: 54 kg

DRUGS (1)
  1. HYDROCORTISONE. [Suspect]
     Active Substance: HYDROCORTISONE
     Indication: ECZEMA
     Route: 061
     Dates: start: 20160201, end: 20160901

REACTIONS (5)
  - Rash pruritic [None]
  - Fatigue [None]
  - Rash erythematous [None]
  - Lymphadenopathy [None]
  - Steroid withdrawal syndrome [None]

NARRATIVE: CASE EVENT DATE: 20161001
